FAERS Safety Report 16849749 (Version 3)
Quarter: 2021Q4

REPORT INFORMATION
  Report Type: Report from Study
  Country: CO (occurrence: CO)
  Receive Date: 20190925
  Receipt Date: 20211106
  Transmission Date: 20220303
  Serious: Yes (Other)
  Sender: FDA-Public Use
  Company Number: PHHY2019CO205978

PATIENT
  Age: 54 Year
  Sex: Female
  Weight: 85 kg

DRUGS (1)
  1. COSENTYX [Suspect]
     Active Substance: SECUKINUMAB
     Indication: Psoriasis
     Dosage: 300 MG, QMO
     Route: 058
     Dates: start: 20180516

REACTIONS (7)
  - Urinary tract infection bacterial [Unknown]
  - Blood urine present [Unknown]
  - Red blood cells urine [Unknown]
  - Urine abnormality [Unknown]
  - White blood cells urine [Unknown]
  - Urinary sediment present [Unknown]
  - Renal disorder [Unknown]

NARRATIVE: CASE EVENT DATE: 20190813
